FAERS Safety Report 4757602-2 (Version None)
Quarter: 2005Q3

REPORT INFORMATION
  Report Type: 
  Country: None (occurrence: None)
  Receive Date: 20050831
  Receipt Date: 20050825
  Transmission Date: 20060218
  Serious: Yes (Hospitalization)
  Sender: FDA-Public Use
  Company Number: 2005PK01566

PATIENT
  Age: 86 Year
  Sex: Female
  Weight: 64 kg

DRUGS (7)
  1. ZESTRIL [Suspect]
     Route: 048
     Dates: end: 20050804
  2. ALDACTONE [Interacting]
     Dates: end: 20050804
  3. LASIX [Interacting]
     Route: 048
     Dates: end: 20050804
  4. OXAZEPAM [Concomitant]
  5. ASPIRIN [Concomitant]
     Route: 048
  6. TRINITRINE [Concomitant]
  7. DILTIAZEM [Concomitant]
     Route: 048

REACTIONS (4)
  - DRUG INTERACTION [None]
  - HYPERKALAEMIA [None]
  - ORTHOSTATIC HYPOTENSION [None]
  - RENAL FAILURE ACUTE [None]
